FAERS Safety Report 5930111-0 (Version None)
Quarter: 2008Q4

REPORT INFORMATION
  Report Type: 
  Country: None (occurrence: None)
  Receive Date: 20081024
  Receipt Date: 20081023
  Transmission Date: 20090506
  Serious: Yes (Hospitalization)
  Sender: FDA-Public Use
  Company Number: US-B.I. PHARMACEUTICALS,INC./RIDGEFIELD-2008-BP-16182BP

PATIENT
  Age: 86 Year
  Sex: Male

DRUGS (10)
  1. FLOMAX [Suspect]
     Indication: BENIGN PROSTATIC HYPERPLASIA
     Dosage: .4MG
     Route: 048
  2. TRAVATAN [Concomitant]
     Indication: EYE DISORDER
  3. COSOPT [Concomitant]
     Indication: EYE DISORDER
  4. MIRTAZAPINE [Concomitant]
     Indication: SLEEP DISORDER
  5. ASPIRIN [Concomitant]
  6. FOSAMAX [Concomitant]
  7. CITALOPRAM HYDROBROMIDE [Concomitant]
     Indication: DEPRESSION
  8. LEVOTHYROXINE SODIUM [Concomitant]
  9. LORAZEPAM [Concomitant]
  10. SIMVASTATIN [Concomitant]
     Indication: BLOOD CHOLESTEROL INCREASED

REACTIONS (3)
  - JOINT SWELLING [None]
  - OEDEMA PERIPHERAL [None]
  - URINARY TRACT INFECTION [None]
